FAERS Safety Report 24768045 (Version 1)
Quarter: 2024Q4

REPORT INFORMATION
  Report Type: Spontaneous
  Country: US (occurrence: US)
  Receive Date: 20241223
  Receipt Date: 20241223
  Transmission Date: 20250114
  Serious: Yes (Hospitalization, Other)
  Sender: NOVO NORDISK
  Company Number: US-NOVOPROD-1293199

PATIENT
  Age: 45 Year
  Sex: Female

DRUGS (3)
  1. OZEMPIC [Suspect]
     Active Substance: SEMAGLUTIDE
     Dosage: 0.5 MG
     Route: 058
  2. OZEMPIC [Suspect]
     Active Substance: SEMAGLUTIDE
     Indication: Glucose tolerance impaired
     Dosage: 0.25MG
     Route: 058
     Dates: start: 202402
  3. OZEMPIC [Suspect]
     Active Substance: SEMAGLUTIDE
     Indication: Glucose tolerance impaired
     Dosage: 1 MG
     Route: 058

REACTIONS (13)
  - Biliary colic [Recovering/Resolving]
  - Diverticulitis [Unknown]
  - Arthralgia [Recovered/Resolved]
  - Plantar fasciitis [Unknown]
  - Malaise [Unknown]
  - Mood altered [Unknown]
  - Blood cholesterol abnormal [Unknown]
  - Gastrointestinal disorder [Recovered/Resolved]
  - Feeding disorder [Unknown]
  - Weight decreased [Unknown]
  - Abdominal pain [Unknown]
  - Nausea [Unknown]
  - Product use in unapproved indication [Unknown]

NARRATIVE: CASE EVENT DATE: 20240501
